FAERS Safety Report 9769781 (Version 2)
Quarter: 2014Q1

REPORT INFORMATION
  Report Type: Spontaneous
  Country: US (occurrence: None)
  Receive Date: 20131216
  Receipt Date: 20140127
  Transmission Date: 20141002
  Serious: Yes (Hospitalization)
  Sender: FDA-Public Use
  Company Number: US-MDCO-13-00062

PATIENT
  Age: 50 Year
  Sex: Male
  Weight: 68.04 kg

DRUGS (3)
  1. ANGIOMAX (BIVALIRUDIN MARKETED) (BIVALIRUDIN) (BIVALIRUDIN) [Suspect]
     Indication: PERCUTANEOUS CORONARY INTERVENTION
     Dosage: 10 ML OR 50 MG,INTRAVENOUS BOLUS
     Route: 040
     Dates: start: 20131204, end: 20131204
  2. ASPIRIN ( ACETYLSALICYCLIC ACID) ( ACETYLSALICYLIC ACID) [Concomitant]
  3. BRILINTA ( TICAGRELOR) ( TICAGRELOR) [Concomitant]

REACTIONS (1)
  - Coronary artery thrombosis [None]
